FAERS Safety Report 6781891-6 (Version None)
Quarter: 2010Q2

REPORT INFORMATION
  Report Type: 
  Country: None (occurrence: None)
  Receive Date: 20100621
  Receipt Date: 20100611
  Transmission Date: 20101027
  Serious: Yes (Hospitalization)
  Sender: FDA-Public Use
  Company Number: GXKR2010NL06722

PATIENT
  Sex: Female

DRUGS (9)
  1. CLOMIPRAMINE (NGX) [Suspect]
     Indication: PAIN
     Dosage: 1 DF, QD
     Route: 048
     Dates: start: 19980101
  2. FENTANYL [Interacting]
     Indication: PAIN
     Dosage: UNK
     Route: 062
     Dates: start: 20100315, end: 20100405
  3. LIPITOR [Concomitant]
     Dosage: 1 DF, QD
     Dates: start: 20080801
  4. COZAAR [Concomitant]
     Dosage: 1 DF, QD
     Dates: start: 20040801
  5. PREDNISOLONE [Concomitant]
     Dosage: 2 DF, QD
     Dates: start: 20080801
  6. DILANORM [Concomitant]
     Dosage: 1 DF, QD
     Dates: start: 20070801
  7. MONO-CEDOCARD [Concomitant]
     Dosage: 1 DF, QD
     Dates: start: 20080717
  8. CLORAZEPATE DIPOTASSIUM [Concomitant]
     Dosage: 1 DF, QD
     Dates: start: 19980101
  9. HYDROCHLOROTHIAZIDE [Concomitant]
     Dosage: 1 DF, QD
     Dates: start: 20070101

REACTIONS (1)
  - SEROTONIN SYNDROME [None]
